FAERS Safety Report 7374937-8 (Version None)
Quarter: 2011Q1

REPORT INFORMATION
  Report Type: 
  Country: None (occurrence: None)
  Receive Date: 20110325
  Receipt Date: 20110314
  Transmission Date: 20110831
  Serious: Yes (Other)
  Sender: FDA-Public Use
  Company Number: US-SANOFI-AVENTIS-2011SA007999

PATIENT
  Age: 79 Year
  Sex: Female
  Weight: 58 kg

DRUGS (3)
  1. SOTALOL HCL [Suspect]
     Route: 065
     Dates: start: 20100101, end: 20100805
  2. ATENOLOL [Concomitant]
  3. MULTAQ [Suspect]
     Indication: ATRIAL FIBRILLATION
     Route: 048
     Dates: start: 20100803, end: 20110217

REACTIONS (7)
  - COUGH [None]
  - OFF LABEL USE [None]
  - TREMOR [None]
  - DYSPNOEA [None]
  - OEDEMA PERIPHERAL [None]
  - ATRIAL FIBRILLATION [None]
  - NASOPHARYNGITIS [None]
